FAERS Safety Report 5962012-6 (Version None)
Quarter: 2008Q4

REPORT INFORMATION
  Report Type: 
  Country: None (occurrence: None)
  Receive Date: 20081121
  Receipt Date: 20081111
  Transmission Date: 20090506
  Serious: Yes (Other)
  Sender: FDA-Public Use
  Company Number: PHEH2008US08812

PATIENT
  Sex: Male
  Weight: 34.014 kg

DRUGS (24)
  1. ZOMETA [Suspect]
     Indication: METASTASES TO BONE
     Dosage: 4 MG, MONTHLY
     Route: 042
     Dates: start: 20060606
  2. TRILEPTAL [Concomitant]
     Dosage: 600 MG, BID
     Dates: start: 20071204
  3. TRILEPTAL [Concomitant]
     Dosage: 300MG QAM / 600MG QPM
     Route: 048
     Dates: start: 20080625
  4. MIRALAX [Concomitant]
     Dosage: UNK
  5. ATENOLOL [Concomitant]
     Dosage: 50 MG, QD
     Dates: start: 20071204
  6. LANOXIN [Concomitant]
     Dosage: 0.125 MG, QD
     Dates: start: 20071204
  7. RESTASIS [Concomitant]
     Dosage: UNK
     Dates: start: 20071204
  8. LASIX [Concomitant]
     Dosage: 40 MG, QD
     Dates: start: 20071204
  9. CELEBREX [Concomitant]
     Dosage: 200 MG, BID
     Dates: start: 20071204
  10. PREVACID [Concomitant]
     Dosage: 30 MG, QD
     Dates: start: 20071204
  11. LUPRON [Concomitant]
     Dosage: 30MG EVERY 4 MONTHS
     Dates: start: 20071204
  12. CASODEX [Concomitant]
     Dosage: 50 MG, QD
     Dates: start: 20071204
  13. FENTANYL [Concomitant]
     Dosage: 50 MG, Q72H
     Dates: start: 20071204
  14. ASCORBIC ACID [Concomitant]
     Dosage: UNK
     Dates: start: 20071204
  15. SUCRALFATE [Concomitant]
     Dosage: 1 G, QID
     Dates: start: 20071204
  16. POTASSIUM CHLORIDE [Concomitant]
     Dosage: 10 MEQ, QD
  17. IRON [Concomitant]
     Dosage: 1 UNK, QD
     Dates: start: 20071204
  18. ULTRAM [Concomitant]
     Dosage: 50 MG, QID
     Dates: start: 20071204
  19. TRAVATAN [Concomitant]
     Dosage: 1 GTT, QD
  20. POLYETHYLENE GLYCOL [Concomitant]
     Dosage: 17 G, QD
     Dates: start: 20071204
  21. TYLENOL W/ CODEINE NO. 3 [Concomitant]
     Dosage: 2 TABLETS 5XDAILY
     Dates: start: 20071204
  22. COSOPT [Concomitant]
     Dosage: 1 GTT RIGHT EYE DAILY
     Dates: start: 20071204
  23. SONATA [Concomitant]
     Dosage: 10 MG, QHS
     Dates: start: 20071204
  24. PROSTATE GLAND EXTRACT [Concomitant]
     Dosage: 2.2 UNK, BID
     Dates: start: 20071204

REACTIONS (2)
  - MALIGNANT TUMOUR EXCISION [None]
  - SKIN CANCER [None]
